FAERS Safety Report 10332548 (Version 5)
Quarter: 2015Q4

REPORT INFORMATION
  Report Type: Spontaneous
  Country: US (occurrence: US)
  Receive Date: 20140722
  Receipt Date: 20151216
  Transmission Date: 20160304
  Serious: Yes (Hospitalization, Other)
  Sender: FDA-Public Use
  Company Number: US-GLAXOSMITHKLINE-A1081588A

PATIENT
  Age: 70 Year
  Sex: Male

DRUGS (17)
  1. METHOTREXATE [Concomitant]
     Active Substance: METHOTREXATE
  2. SPIRONOLACTONE. [Concomitant]
     Active Substance: SPIRONOLACTONE
  3. MIRALAX [Concomitant]
     Active Substance: POLYETHYLENE GLYCOL 3350
  4. ASPIRIN (BABY) [Concomitant]
     Active Substance: ASPIRIN
  5. PROTONIX [Concomitant]
     Active Substance: PANTOPRAZOLE SODIUM
  6. PRAVASTATIN [Concomitant]
     Active Substance: PRAVASTATIN\PRAVASTATIN SODIUM
  7. ADVAIR HFA [Suspect]
     Active Substance: FLUTICASONE PROPIONATE\SALMETEROL XINAFOATE
     Indication: PRODUCT USED FOR UNKNOWN INDICATION
     Dosage: 1 PUFF(S), BID
     Route: 055
  8. CREON [Concomitant]
     Active Substance: PANCRELIPASE AMYLASE\PANCRELIPASE LIPASE\PANCRELIPASE PROTEASE
  9. AMLODIPINE [Concomitant]
     Active Substance: AMLODIPINE BESYLATE
  10. ADVAIR HFA [Suspect]
     Active Substance: FLUTICASONE PROPIONATE\SALMETEROL XINAFOATE
     Indication: CHRONIC OBSTRUCTIVE PULMONARY DISEASE
     Dosage: 2 PUFF(S), BID
     Route: 055
  11. PLAQUENIL [Concomitant]
     Active Substance: HYDROXYCHLOROQUINE SULFATE
  12. ALBUTEROL NEBULIZER [Concomitant]
     Active Substance: ALBUTEROL
  13. PRILOSEC [Concomitant]
     Active Substance: OMEPRAZOLE MAGNESIUM
  14. PREDNISONE. [Concomitant]
     Active Substance: PREDNISONE
  15. CARVEDILOL. [Concomitant]
     Active Substance: CARVEDILOL
  16. PROAIR HFA [Concomitant]
     Active Substance: ALBUTEROL SULFATE
  17. OXYGEN. [Concomitant]
     Active Substance: OXYGEN

REACTIONS (11)
  - Urinary tract infection [Recovering/Resolving]
  - Pancreatitis [Unknown]
  - Gastritis [Recovered/Resolved]
  - Abdominal pain upper [Recovered/Resolved]
  - Enterococcal infection [Recovering/Resolving]
  - Pancreatolithiasis [Unknown]
  - Gastric disorder [Recovered/Resolved]
  - Stent placement [Recovering/Resolving]
  - Hospitalisation [Unknown]
  - Hypoacusis [Unknown]
  - Dyspepsia [Recovered/Resolved]

NARRATIVE: CASE EVENT DATE: 201312
